FAERS Safety Report 9222214 (Version 2)
Quarter: 2013Q2

REPORT INFORMATION
  Report Type: Report from Study
  Country: US (occurrence: US)
  Receive Date: 20130410
  Receipt Date: 20130521
  Transmission Date: 20140414
  Serious: Yes (Other)
  Sender: FDA-Public Use
  Company Number: PHEH2013US007983

PATIENT
  Age: 62 Year
  Sex: Female
  Weight: 77 kg

DRUGS (7)
  1. GILENYA [Suspect]
     Indication: MULTIPLE SCLEROSIS
     Dosage: 0.5 MG, QD
     Route: 048
     Dates: start: 20111114
  2. MAVIK [Concomitant]
     Dosage: 1 DF, QD
     Route: 048
  3. GABAPENTIN [Concomitant]
     Indication: NEURALGIA
     Dosage: 1 DF, TID
     Route: 048
  4. CARDURA [Concomitant]
     Indication: HYPERTENSION
     Dosage: 1 DF, QD
     Route: 048
  5. NORVASC [Concomitant]
     Indication: HYPERTENSION
     Dosage: 1 DF, QD
     Route: 048
  6. AMANTADINE HYDROCHLORIDE [Concomitant]
     Indication: FATIGUE
     Dosage: 1 DF, BID
     Route: 048
  7. AMPYRA [Concomitant]
     Dosage: 10 MG, Q12H
     Route: 048

REACTIONS (1)
  - Basal cell carcinoma [Not Recovered/Not Resolved]
